FAERS Safety Report 8832465 (Version 1)
Quarter: 2012Q4

REPORT INFORMATION
  Report Type: Spontaneous
  Country: IT (occurrence: None)
  Receive Date: 20121005
  Receipt Date: 20121005
  Transmission Date: 20130627
  Serious: Yes (Hospitalization)
  Sender: FDA-Public Use
  Company Number: AUR-APL-2012-04222

PATIENT
  Age: 79 Year
  Sex: Female
  Weight: 69 kg

DRUGS (2)
  1. CEFTRIAXONE [Suspect]
     Indication: URINARY TRACT INFECTION
     Route: 030
     Dates: start: 20120630, end: 20120706
  2. IBUPROFEN [Suspect]
     Route: 048
     Dates: start: 20120605, end: 20120625

REACTIONS (1)
  - Hepatitis cholestatic [None]
